FAERS Safety Report 7384684-4 (Version None)
Quarter: 2011Q1

REPORT INFORMATION
  Report Type: 
  Country: None (occurrence: None)
  Receive Date: 20110330
  Receipt Date: 20110316
  Transmission Date: 20110831
  Serious: Yes (Hospitalization)
  Sender: FDA-Public Use
  Company Number: PHHO2011US04885

PATIENT
  Age: 60 Year
  Sex: Female

DRUGS (2)
  1. STI571/CGP57148B [Suspect]
     Indication: PULMONARY ARTERIAL HYPERTENSION
     Dosage: UNK
     Dates: start: 20100505
  2. REMODULIN [Concomitant]

REACTIONS (3)
  - DEVICE RELATED INFECTION [None]
  - CATHETER SITE PAIN [None]
  - CATHETER SITE ERYTHEMA [None]
